FAERS Safety Report 9269480 (Version 3)
Quarter: 2013Q2

REPORT INFORMATION
  Report Type: Spontaneous
  Country: US (occurrence: US)
  Receive Date: 20130503
  Receipt Date: 20130524
  Transmission Date: 20140414
  Serious: Yes (Other)
  Sender: FDA-Public Use
  Company Number: US-PFIZER INC-2013137436

PATIENT
  Sex: Female

DRUGS (2)
  1. LYRICA [Suspect]
     Dosage: UNK
     Dates: start: 20100113, end: 20130514
  2. LYRICA [Suspect]
     Dosage: UNK
     Dates: start: 201305

REACTIONS (2)
  - Fall [Unknown]
  - Foot fracture [Unknown]
